FAERS Safety Report 18700718 (Version 1)
Quarter: 2021Q1

REPORT INFORMATION
  Report Type: Spontaneous
  Country: US (occurrence: US)
  Receive Date: 20210105
  Receipt Date: 20210105
  Transmission Date: 20210419
  Serious: No
  Sender: FDA-Public Use
  Company Number: US-ALLERGAN-2015497US

PATIENT
  Sex: Female

DRUGS (2)
  1. PREDNISOLONE UNK [Suspect]
     Active Substance: PREDNISOLONE
     Indication: OCULAR HYPERAEMIA
     Dosage: UNK
     Route: 065
  2. ANASTROZOLE ZYDUS [Concomitant]
     Active Substance: ANASTROZOLE
     Indication: BREAST CANCER
     Dosage: 1 MG, QD
     Route: 048
     Dates: start: 20191213

REACTIONS (1)
  - Condition aggravated [Not Recovered/Not Resolved]
